FAERS Safety Report 15208849 (Version 1)
Quarter: 2018Q3

REPORT INFORMATION
  Report Type: Spontaneous
  Country: AT (occurrence: AT)
  Receive Date: 20180727
  Receipt Date: 20180727
  Transmission Date: 20181010
  Serious: Yes (Other)
  Sender: FDA-Public Use
  Company Number: AT-PFIZER INC-2018297001

PATIENT
  Age: 21 Year
  Sex: Female

DRUGS (8)
  1. TEMESTA /00273201/ [Concomitant]
     Active Substance: LORAZEPAM
     Dosage: 6.25 MG, UNK
     Dates: start: 20180305, end: 20180322
  2. SERTRALINE HCL [Suspect]
     Active Substance: SERTRALINE HYDROCHLORIDE
     Dosage: 200 MG, UNK
     Dates: start: 20180315, end: 20180430
  3. AKINETON [Concomitant]
     Active Substance: BIPERIDEN HYDROCHLORIDE
     Dosage: 4 MG, UNK
     Dates: start: 20180227, end: 20180313
  4. SERTRALINE HCL [Suspect]
     Active Substance: SERTRALINE HYDROCHLORIDE
     Dosage: 150 MG, UNK
     Dates: start: 20180215, end: 20180314
  5. HALDOL [Suspect]
     Active Substance: HALOPERIDOL
     Dosage: 20 MG, UNK
     Dates: start: 20180221, end: 20180306
  6. HALDOL [Suspect]
     Active Substance: HALOPERIDOL
     Dosage: 15 MG, UNK
     Dates: start: 20180306, end: 20180313
  7. HALDOL [Suspect]
     Active Substance: HALOPERIDOL
     Dosage: 10 MG, UNK
     Dates: start: 20180313, end: 20180314
  8. PREGABALIN. [Concomitant]
     Active Substance: PREGABALIN
     Dosage: 600 MG, UNK
     Dates: start: 20180213, end: 20180430

REACTIONS (1)
  - Urinary retention [Recovered/Resolved]

NARRATIVE: CASE EVENT DATE: 20180311
